FAERS Safety Report 6397798-2 (Version None)
Quarter: 2009Q4

REPORT INFORMATION
  Report Type: 
  Country: None (occurrence: None)
  Receive Date: 20091006
  Receipt Date: 20090930
  Transmission Date: 20100525
  Serious: Yes (Hospitalization, Other)
  Sender: FDA-Public Use
  Company Number: WAES 0802USA06006

PATIENT
  Age: 49 Year
  Sex: Male
  Weight: 85.7298 kg

DRUGS (22)
  1. VORINOSTAT UNK [Suspect]
     Indication: ACUTE MYELOID LEUKAEMIA
     Dosage: 400 MG/DAILY/PO
     Route: 048
     Dates: start: 20071202, end: 20071205
  2. INFUSION (FORM) DECITABINE           20 MG/M[2] [Suspect]
     Indication: ACUTE MYELOID LEUKAEMIA
     Dosage: 20 MG/M[2]/DAILY/IV
     Route: 042
     Dates: start: 20071127, end: 20071201
  3. AVELOX [Suspect]
     Indication: ANTIBIOTIC PROPHYLAXIS
     Dates: start: 20071101
  4. VORICONAZOLE [Suspect]
     Indication: ANTIFUNGAL PROPHYLAXIS
     Dosage: 175 MG/BID/PO
     Route: 048
     Dates: start: 20071126, end: 20071205
  5. AMBIEN [Concomitant]
  6. AMBISOME [Concomitant]
  7. ATIVAN [Concomitant]
  8. ATROVENT [Concomitant]
  9. COMPAZINE [Concomitant]
  10. FLOMAX (MORNIFLUMATE) [Concomitant]
  11. OXYCONTIN [Concomitant]
  12. PERIDEX (CHLORHEXIDINE GLUCONATE [Concomitant]
  13. ACETAMINOPHEN [Concomitant]
  14. XOPENEX [Concomitant]
  15. ZOFRAN [Concomitant]
  16. ACYCLOVIR [Concomitant]
  17. ALLOPURINOL [Concomitant]
  18. HYDROCORTISONE [Concomitant]
  19. HYDROXYUREA [Concomitant]
  20. OXYCODONE [Concomitant]
  21. PAROXETINE HCL [Concomitant]
  22. POTASSIUM CHLORIDE [Concomitant]

REACTIONS (7)
  - ELECTROCARDIOGRAM QT PROLONGED [None]
  - ELECTROLYTE IMBALANCE [None]
  - HYPOKALAEMIA [None]
  - HYPOPHAGIA [None]
  - ORTHOSTATIC HYPOTENSION [None]
  - PYREXIA [None]
  - REFUSAL OF TREATMENT BY PATIENT [None]
